FAERS Safety Report 22189559 (Version 2)
Quarter: 2023Q2

REPORT INFORMATION
  Report Type: Report from Study
  Country: CA (occurrence: CA)
  Receive Date: 20230410
  Receipt Date: 20230426
  Transmission Date: 20230722
  Serious: No
  Sender: FDA-Public Use
  Company Number: CA-ABBVIE-4720439

PATIENT
  Age: 52 Year
  Sex: Female

DRUGS (1)
  1. RINVOQ [Suspect]
     Active Substance: UPADACITINIB
     Indication: Rheumatoid arthritis
     Route: 048
     Dates: start: 202302, end: 202303

REACTIONS (2)
  - Rash [Unknown]
  - Acne [Unknown]

NARRATIVE: CASE EVENT DATE: 20230201
